FAERS Safety Report 8781775 (Version 1)
Quarter: 2012Q4

REPORT INFORMATION
  Report Type: 
  Country: US (occurrence: US)
  Receive Date: 20120913
  Receipt Date: 20120913
  Transmission Date: 20130627
  Serious: No
  Sender: FDA-Public Use
  Company Number: US-PFIZER INC-2012224319

PATIENT
  Age: 76 Year
  Sex: Male
  Weight: 61.22 kg

DRUGS (3)
  1. TOVIAZ [Suspect]
     Indication: HYPERTONIC BLADDER
     Dosage: 4 mg, 2x/day
     Dates: start: 201208
  2. FLOMAX [Concomitant]
     Indication: PROSTATOMEGALY
     Dosage: UNK
  3. DIOVAN (VALSARTAN) [Concomitant]
     Indication: HYPERTENSION
     Dosage: 120 mg, daily

REACTIONS (1)
  - Hyperhidrosis [Recovered/Resolved]
